FAERS Safety Report 20333086 (Version 1)
Quarter: 2022Q1

REPORT INFORMATION
  Report Type: Spontaneous
  Country: DE (occurrence: DE)
  Receive Date: 20220113
  Receipt Date: 20220113
  Transmission Date: 20220423
  Serious: Yes (Death, Hospitalization)
  Sender: FDA-Public Use
  Company Number: DE-SA-2022SA009588

PATIENT
  Age: 66 Year

DRUGS (7)
  1. ACYCLOVIR [Suspect]
     Active Substance: ACYCLOVIR
     Indication: Herpes simplex
     Dosage: ORAL
     Route: 048
  2. ACYCLOVIR [Suspect]
     Active Substance: ACYCLOVIR
     Dosage: 5-10 MG/KG , TID
     Route: 042
  3. ACYCLOVIR [Suspect]
     Active Substance: ACYCLOVIR
     Dosage: CREAM
  4. ANTI-THYMOCYTE GLOBULIN (RABBIT) NOS [Suspect]
     Active Substance: LAPINE T-LYMPHOCYTE IMMUNE GLOBULIN
     Indication: Acute myeloid leukaemia recurrent
     Dosage: UNK
  5. ANTI-THYMOCYTE GLOBULIN (RABBIT) NOS [Suspect]
     Active Substance: LAPINE T-LYMPHOCYTE IMMUNE GLOBULIN
     Indication: Salvage therapy
  6. AZACITIDINE [Suspect]
     Active Substance: AZACITIDINE
     Indication: Acute myeloid leukaemia recurrent
  7. AZACITIDINE [Suspect]
     Active Substance: AZACITIDINE
     Indication: Salvage therapy

REACTIONS (4)
  - Oral viral infection [Fatal]
  - Herpes simplex [Fatal]
  - Drug resistance [Fatal]
  - Lymphopenia [Fatal]
